FAERS Safety Report 20874092 (Version 1)
Quarter: 2022Q2

REPORT INFORMATION
  Report Type: Spontaneous
  Country: None (occurrence: GB)
  Receive Date: 20220525
  Receipt Date: 20220525
  Transmission Date: 20220720
  Serious: No
  Sender: FDA-Public Use
  Company Number: GB-Breckenridge Pharmaceutical, Inc.-2129169

PATIENT
  Age: 29 Year
  Sex: Female

DRUGS (6)
  1. OMEPRAZOLE [Suspect]
     Active Substance: OMEPRAZOLE
     Route: 048
  2. BISOPROLOL. [Concomitant]
     Active Substance: BISOPROLOL FUMARATE
  3. CITALOPRAM [Concomitant]
     Active Substance: CITALOPRAM HYDROBROMIDE
  4. MEBEVERINE [Concomitant]
     Active Substance: MEBEVERINE
  5. MICROGYNON (ETHINYLESTRADIOL; LEVONORGESTREL) [Concomitant]
  6. ALBUTEROL [Concomitant]
     Active Substance: ALBUTEROL

REACTIONS (5)
  - Hypomagnesaemia [Recovered/Resolved]
  - Adjusted calcium decreased [Unknown]
  - Pulmonary embolism [Unknown]
  - Product monitoring error [Unknown]
  - Blood potassium decreased [Unknown]
